FAERS Safety Report 21271133 (Version 3)
Quarter: 2022Q3

REPORT INFORMATION
  Report Type: Report from Study
  Country: PL (occurrence: None)
  Receive Date: 20220830
  Receipt Date: 20220902
  Transmission Date: 20221027
  Serious: Yes (Death)
  Sender: FDA-Public Use
  Company Number: PL-ROCHE-3169389

PATIENT
  Age: 71 Year
  Sex: Female
  Weight: 53 kg

DRUGS (13)
  1. ATEZOLIZUMAB [Suspect]
     Active Substance: ATEZOLIZUMAB
     Indication: Metastatic renal cell carcinoma
     Dosage: MOST RECENT DOSE OF STUDY DRUG PRIOR TO AE/SAE: 18/MAR/2021
     Route: 041
     Dates: start: 20210225
  2. CABOZANTINIB [Suspect]
     Active Substance: CABOZANTINIB
     Indication: Metastatic renal cell carcinoma
     Dosage: THREE 20-MG TABLETS AS PER PROTOCOL?MOST RECENT DOSE OF STUDY DRUG PRIOR TO AE/SAE: 04/AUG/2022, 40
     Route: 048
     Dates: start: 20210225
  3. ENOXAPARIN SODIUM [Concomitant]
     Active Substance: ENOXAPARIN SODIUM
     Indication: Prophylaxis
     Route: 030
     Dates: start: 2017
  4. CONCORAM [Concomitant]
     Indication: Hypertension
     Route: 048
     Dates: start: 2010
  5. METOPROLOL TARTRATE [Concomitant]
     Active Substance: METOPROLOL TARTRATE
     Indication: Hypertension
     Route: 048
     Dates: start: 2010
  6. LOPERAMIDE [Concomitant]
     Active Substance: LOPERAMIDE
     Indication: Diarrhoea
     Route: 048
     Dates: start: 20210601
  7. LOPERAMIDE [Concomitant]
     Active Substance: LOPERAMIDE
     Indication: Abdominal pain
  8. MEGESTROLI ACETAS [Concomitant]
     Indication: Weight decreased
     Route: 048
     Dates: start: 20210610
  9. MEGACE [Concomitant]
     Active Substance: MEGESTROL ACETATE
     Indication: Decreased appetite
     Route: 048
     Dates: start: 20210611
  10. EUTHYROX [Concomitant]
     Active Substance: LEVOTHYROXINE SODIUM
     Indication: Hypothyroidism
     Route: 048
     Dates: start: 20211020
  11. MAGNESIUM B6 [Concomitant]
     Indication: Hypomagnesaemia
     Route: 048
     Dates: start: 20211014
  12. ENOXAPARIN SODIUM [Concomitant]
     Active Substance: ENOXAPARIN SODIUM
     Indication: Haematuria
     Route: 030
     Dates: start: 20220303
  13. ENOXAPARIN SODIUM [Concomitant]
     Active Substance: ENOXAPARIN SODIUM
     Route: 030
     Dates: start: 20220226

REACTIONS (1)
  - Disease progression [Fatal]

NARRATIVE: CASE EVENT DATE: 20220824
